FAERS Safety Report 19351712 (Version 1)
Quarter: 2021Q2

REPORT INFORMATION
  Report Type: Spontaneous
  Country: IR (occurrence: IR)
  Receive Date: 20210531
  Receipt Date: 20210531
  Transmission Date: 20210717
  Serious: Yes (Hospitalization, Other)
  Sender: FDA-Public Use
  Company Number: IR-ALVOGEN-2021-ALVOGEN-117034

PATIENT
  Age: 64 Year
  Sex: Female

DRUGS (1)
  1. LIDOCAINE. [Suspect]
     Active Substance: LIDOCAINE
     Indication: SKIN COSMETIC PROCEDURE
     Route: 061

REACTIONS (2)
  - Toxicity to various agents [Unknown]
  - Cardiac arrest [Recovered/Resolved]
